FAERS Safety Report 25654523 (Version 1)
Quarter: 2025Q3

REPORT INFORMATION
  Report Type: Spontaneous
  Country: US (occurrence: None)
  Receive Date: 20250806
  Receipt Date: 20250806
  Transmission Date: 20251020
  Serious: Yes (Hospitalization)
  Sender: FDA-CTU
  Company Number: None

PATIENT
  Age: 73 Year
  Sex: Female
  Weight: 84.7 kg

DRUGS (12)
  1. TACROLIMUS [Suspect]
     Active Substance: TACROLIMUS
     Indication: Renal transplant
     Dosage: FREQUENCY : TWICE A DAY;?
     Route: 048
     Dates: start: 20210526
  2. MYCOPHENOLIC ACID [Suspect]
     Active Substance: MYCOPHENOLIC ACID
     Indication: Renal transplant
     Dosage: FREQUENCY : TWICE A DAY;?
     Route: 048
     Dates: start: 20210526
  3. ATORVASTATIN [Concomitant]
     Active Substance: ATORVASTATIN
  4. COLESEVELAM [Concomitant]
     Active Substance: COLESEVELAM
  5. ESTRADIOL 0.01% VAG CREAM [Concomitant]
  6. FERROUS SULFATE [Concomitant]
     Active Substance: FERROUS SULFATE
  7. FLECAINIDE [Concomitant]
     Active Substance: FLECAINIDE
  8. GABAPENTIN [Concomitant]
     Active Substance: GABAPENTIN
  9. MIRABEGRON [Concomitant]
     Active Substance: MIRABEGRON
  10. NYSTATIN [Concomitant]
     Active Substance: NYSTATIN
  11. WARFARIN SODIUM [Concomitant]
     Active Substance: WARFARIN SODIUM
  12. LOSARTAN [Concomitant]
     Active Substance: LOSARTAN

REACTIONS (1)
  - Urinary tract infection [None]

NARRATIVE: CASE EVENT DATE: 20250728
